FAERS Safety Report 15571599 (Version 1)
Quarter: 2018Q4

REPORT INFORMATION
  Report Type: Spontaneous
  Country: US (occurrence: US)
  Receive Date: 20181031
  Receipt Date: 20181031
  Transmission Date: 20190205
  Serious: Yes (Death)
  Sender: FDA-Public Use
  Company Number: US-ALSI-201800596

PATIENT
  Age: 4 Year
  Sex: Male

DRUGS (5)
  1. PROPOFOL. [Suspect]
     Active Substance: PROPOFOL
  2. NITROUS OXIDE. [Suspect]
     Active Substance: NITROUS OXIDE
     Indication: ANAESTHESIA
  3. VERSED [Suspect]
     Active Substance: MIDAZOLAM HYDROCHLORIDE
  4. FENTANYL. [Suspect]
     Active Substance: FENTANYL
  5. KETAMINE [Suspect]
     Active Substance: KETAMINE

REACTIONS (4)
  - Drug interaction [Fatal]
  - Cyanosis [Fatal]
  - Toxicity to various agents [Fatal]
  - Respiratory arrest [Fatal]
